FAERS Safety Report 14705176 (Version 2)
Quarter: 2018Q2

REPORT INFORMATION
  Report Type: Report from Study
  Country: AU (occurrence: AU)
  Receive Date: 20180402
  Receipt Date: 20180405
  Transmission Date: 20180711
  Serious: Yes (Hospitalization, Other)
  Sender: FDA-Public Use
  Company Number: AU-PFIZER INC-2018132080

PATIENT
  Age: 77 Year
  Sex: Male

DRUGS (21)
  1. DEGARELIX [Concomitant]
     Active Substance: DEGARELIX
     Dosage: 80 MG, UNK
     Route: 058
     Dates: start: 20160624
  2. GOSERELIN [Concomitant]
     Active Substance: GOSERELIN
     Dosage: 10.8 MG, UNK
     Route: 058
     Dates: start: 201612
  3. SALBUTAMOL [Concomitant]
     Active Substance: ALBUTEROL
     Dosage: 100 UG, UNK
     Route: 045
     Dates: start: 20171127
  4. ENZALUTAMIDE [Suspect]
     Active Substance: ENZALUTAMIDE
     Indication: PROSTATE CANCER METASTATIC
     Dosage: 160 MG, 1X/DAY
     Route: 048
     Dates: start: 20160818, end: 20161027
  5. ENZALUTAMIDE [Suspect]
     Active Substance: ENZALUTAMIDE
     Dosage: 160 MG, 1X/DAY
     Route: 048
     Dates: start: 20161030, end: 20180320
  6. VITAMIN D /00107901/ [Concomitant]
     Active Substance: ERGOCALCIFEROL
     Indication: PROPHYLAXIS
     Route: 048
     Dates: start: 20160727
  7. PREDNISOLONE. [Concomitant]
     Active Substance: PREDNISOLONE
     Dosage: 5 MG, 1X/DAY
     Route: 048
     Dates: start: 20170928
  8. DYMISTA [Concomitant]
     Active Substance: AZELASTINE HYDROCHLORIDE\FLUTICASONE PROPIONATE
     Dosage: 125.5 MG, PRN
     Route: 045
     Dates: start: 20171009
  9. DOCETAXEL. [Suspect]
     Active Substance: DOCETAXEL
     Dosage: 120 MG, UNK
     Route: 042
     Dates: end: 20161017
  10. FRUSEMIDE /00032601/ [Concomitant]
     Active Substance: FUROSEMIDE
     Dosage: 40 MG, 1X/DAY
     Route: 048
     Dates: start: 20150312
  11. ROSUVASTATIN. [Concomitant]
     Active Substance: ROSUVASTATIN
     Indication: PROPHYLAXIS
     Route: 048
     Dates: start: 20150312
  12. RIVAROXABAN [Concomitant]
     Active Substance: RIVAROXABAN
     Dosage: 15 MG, 1X/DAY
     Route: 048
     Dates: start: 20170322
  13. PARACETAMOL [Concomitant]
     Active Substance: ACETAMINOPHEN
     Dosage: 500 MG, PRN
     Route: 048
     Dates: start: 20161006
  14. MAGNESIUM [Concomitant]
     Active Substance: MAGNESIUM
     Indication: PROPHYLAXIS
     Dosage: 250 MG, 1X/DAY
     Route: 048
     Dates: start: 20160727
  15. SERC /00034201/ [Concomitant]
     Dosage: 4 MG, 1X/DAY
     Route: 048
     Dates: start: 1995
  16. NEXIUM [Concomitant]
     Active Substance: ESOMEPRAZOLE MAGNESIUM
     Indication: PROPHYLAXIS
     Dosage: 40 MG, 1X/DAY
     Route: 048
     Dates: start: 201612
  17. DOCETAXEL. [Suspect]
     Active Substance: DOCETAXEL
     Indication: PROSTATE CANCER METASTATIC
     Dosage: 145 MG, UNK
     Route: 042
     Dates: start: 20160926
  18. ALLOPURINOL. [Concomitant]
     Active Substance: ALLOPURINOL
     Dosage: 100 MG, 1X/DAY
     Route: 048
     Dates: start: 2006
  19. ASPIRIN. [Concomitant]
     Active Substance: ASPIRIN
     Dosage: 100 MG, 1X/DAY
     Route: 048
     Dates: start: 20150312
  20. PROBIOTIC /06395501/ [Concomitant]
     Active Substance: BIFIDOBACTERIUM ANIMALIS LACTIS
     Indication: PROPHYLAXIS
     Dosage: 1 DF, 1X/DAY
     Route: 048
     Dates: start: 201606
  21. SWISS CAL [Concomitant]
     Indication: PROPHYLAXIS
     Dosage: 250 MG, 1X/DAY
     Route: 048
     Dates: start: 20160727

REACTIONS (3)
  - Pyrexia [Recovered/Resolved]
  - Febrile neutropenia [Recovered/Resolved]
  - Transient ischaemic attack [Recovered/Resolved]

NARRATIVE: CASE EVENT DATE: 20161005
